FAERS Safety Report 9540890 (Version 1)
Quarter: 2013Q3

REPORT INFORMATION
  Report Type: Spontaneous
  Country: FR (occurrence: FR)
  Receive Date: 20130921
  Receipt Date: 20130921
  Transmission Date: 20140515
  Serious: Yes (Hospitalization)
  Sender: FDA-Public Use
  Company Number: FR-ROCHE-1277885

PATIENT
  Age: 74 Year
  Sex: Male

DRUGS (2)
  1. ROCEPHINE [Suspect]
     Indication: ENDOCARDITIS
     Route: 042
     Dates: start: 20121217, end: 20130105
  2. ROCEPHINE [Suspect]
     Indication: ARTHRITIS

REACTIONS (1)
  - Encephalopathy [Recovered/Resolved]
